FAERS Safety Report 22275921 (Version 1)
Quarter: 2023Q2

REPORT INFORMATION
  Report Type: Spontaneous
  Country: US (occurrence: None)
  Receive Date: 20230501
  Receipt Date: 20230501
  Transmission Date: 20230722
  Serious: No
  Sender: FDA-Public Use
  Company Number: None

PATIENT
  Age: 71 Year
  Sex: Male
  Weight: 64.35 kg

DRUGS (10)
  1. TACROLIMUS [Suspect]
     Active Substance: TACROLIMUS
     Indication: Prophylaxis against transplant rejection
     Dosage: FREQUENCY : TWICE A DAY;?
     Route: 048
     Dates: start: 20230323
  2. Valgancyclovir 450mg [Concomitant]
     Dates: start: 20230323
  3. Sulfameth/trimethoprim 400-80mg [Concomitant]
     Dates: start: 20230323
  4. PREDNISONE [Concomitant]
     Active Substance: PREDNISONE
     Dates: start: 20230323
  5. MYCOPHENOLIC ACID [Concomitant]
     Active Substance: MYCOPHENOLIC ACID
     Dates: start: 20230323
  6. MIRTAZAPINE [Concomitant]
     Active Substance: MIRTAZAPINE
     Dates: start: 20230323
  7. FAMOTIDINE [Concomitant]
     Active Substance: FAMOTIDINE
     Dates: start: 20230323
  8. CRESEMBA [Concomitant]
     Active Substance: ISAVUCONAZONIUM SULFATE
     Dates: start: 20230323
  9. MELATONIN [Concomitant]
     Active Substance: MELATONIN
     Dates: start: 20230323
  10. Albuterol nebulizer 0.083% [Concomitant]
     Dates: start: 20230323

REACTIONS (2)
  - Tremor [None]
  - Loss of personal independence in daily activities [None]

NARRATIVE: CASE EVENT DATE: 20230417
